FAERS Safety Report 9056060 (Version 1)
Quarter: 2013Q1

REPORT INFORMATION
  Report Type: Spontaneous
  Country: TR (occurrence: TR)
  Receive Date: 20130205
  Receipt Date: 20130205
  Transmission Date: 20140127
  Serious: Yes (Hospitalization)
  Sender: FDA-Public Use
  Company Number: PHHY2013TR010343

PATIENT
  Age: 47 Year
  Sex: Male

DRUGS (1)
  1. SANDOSTATIN LAR [Suspect]
     Indication: ACROMEGALY
     Dosage: 30 MG, ONCE EVERY 28 DAYS
     Dates: start: 20120125

REACTIONS (1)
  - Megacolon [Not Recovered/Not Resolved]
